FAERS Safety Report 7638492-7 (Version None)
Quarter: 2011Q3

REPORT INFORMATION
  Report Type: 
  Country: None (occurrence: None)
  Receive Date: 20110727
  Receipt Date: 20110712
  Transmission Date: 20111222
  Serious: Yes (Hospitalization)
  Sender: FDA-Public Use
  Company Number: PHHY2011BR63515

PATIENT
  Sex: Female

DRUGS (5)
  1. HYDROCHLOROTHIAZIDE [Concomitant]
     Indication: DIURETIC THERAPY
     Dosage: 1 DF, (1 TABLET A DAY)
     Route: 048
  2. AMLODIPINE BESYLATE [Suspect]
     Dosage: 1 DF, (1 TABLET A DAY)
     Route: 048
  3. DIOVAN [Suspect]
     Indication: HYPERTENSION
     Dosage: 1 DF, (1 TABLET A DAY)
     Route: 048
  4. ANCORON [Concomitant]
     Dosage: 1 DF, (1 TABLET A DAY (FROM MONDAY TO FRIDAY)
     Route: 048
  5. DIABINESE [Concomitant]
     Indication: DIABETES MELLITUS
     Dosage: 2 DF, (2 TABLETS A DAY)
     Route: 048

REACTIONS (6)
  - WRIST FRACTURE [None]
  - FRACTURE [None]
  - FALL [None]
  - FEMUR FRACTURE [None]
  - HYPOTHYROIDISM [None]
  - WALKING AID USER [None]
